FAERS Safety Report 6647851-0 (Version None)
Quarter: 2010Q1

REPORT INFORMATION
  Report Type: 
  Country: None (occurrence: None)
  Receive Date: 20100324
  Receipt Date: 20100312
  Transmission Date: 20100710
  Serious: Yes (Other)
  Sender: FDA-Public Use
  Company Number: US-JNJFOC-20100304655

PATIENT
  Age: 3 Year
  Sex: Female
  Weight: 16.78 kg

DRUGS (4)
  1. TYLENOL-500 [Suspect]
  2. TYLENOL-500 [Suspect]
     Indication: PYREXIA
  3. MOTRIN [Suspect]
     Indication: PYREXIA
  4. MAALOX MS TOTAL STOMACH RELIEF [Suspect]
     Indication: ABDOMINAL PAIN UPPER

REACTIONS (3)
  - ABDOMINAL PAIN UPPER [None]
  - DRUG INEFFECTIVE [None]
  - PNEUMONIA [None]
